FAERS Safety Report 24645647 (Version 2)
Quarter: 2024Q4

REPORT INFORMATION
  Report Type: Spontaneous
  Country: CL (occurrence: CL)
  Receive Date: 20241121
  Receipt Date: 20241213
  Transmission Date: 20250115
  Serious: Yes (Other)
  Sender: ROCHE
  Company Number: CL-ROCHE-10000136624

PATIENT
  Sex: Female

DRUGS (1)
  1. HERCEPTIN [Suspect]
     Active Substance: TRASTUZUMAB
     Indication: Breast cancer
     Dosage: DOSE AND FREQUENCY WERE NOT REPORTED
     Route: 065

REACTIONS (1)
  - Tuberculosis [Unknown]
